FAERS Safety Report 4829498-1 (Version None)
Quarter: 2005Q4

REPORT INFORMATION
  Report Type: 
  Country: None (occurrence: None)
  Receive Date: 20051116
  Receipt Date: 20041126
  Transmission Date: 20060501
  Serious: Yes (Hospitalization, Other)
  Sender: FDA-Public Use
  Company Number: CA-SANOFI-SYNTHELABO-F01200403780

PATIENT
  Sex: Male

DRUGS (11)
  1. OXALIPLATIN [Suspect]
     Indication: COLORECTAL CANCER METASTATIC
     Route: 042
  2. FLUOROURACIL [Suspect]
     Dosage: 768 MG IV BOLUS AND 1152 MG IV CONTINUOUS INFUSION, Q2W
     Route: 042
  3. LEUCOVORIN [Suspect]
     Route: 042
  4. BEVACIZUMAB OR PLACEBO [Suspect]
     Route: 042
  5. CARDIZEM [Concomitant]
     Dosage: UNK
     Route: 065
     Dates: start: 19990515
  6. ATACAND [Concomitant]
     Dosage: UNK
     Route: 065
     Dates: start: 20000817
  7. LOSEC [Concomitant]
     Dosage: UNK
     Route: 065
     Dates: start: 19990515
  8. LIPITOR [Concomitant]
     Dosage: UNK
     Route: 065
     Dates: start: 19991115
  9. WARFARIN [Interacting]
     Dosage: 1 MG
     Route: 048
     Dates: start: 20040824, end: 20041114
  10. SEPTRA [Interacting]
     Dosage: 800 MG
     Route: 065
     Dates: start: 20041020, end: 20041026
  11. VANCOMYCIN [Interacting]
     Dosage: 500 MG
     Route: 048
     Dates: start: 20041113, end: 20041115

REACTIONS (3)
  - DIARRHOEA [None]
  - INTERNATIONAL NORMALISED RATIO INCREASED [None]
  - NEUTROPENIA [None]
